FAERS Safety Report 7565333-9 (Version None)
Quarter: 2011Q2

REPORT INFORMATION
  Report Type: 
  Country: None (occurrence: None)
  Receive Date: 20110623
  Receipt Date: 20110614
  Transmission Date: 20111010
  Serious: Yes (Hospitalization)
  Sender: FDA-Public Use
  Company Number: US-BIOGENIDEC-2011BI013276

PATIENT
  Age: 66 Year
  Sex: Female

DRUGS (3)
  1. COUMADIN [Concomitant]
  2. AVONEX [Suspect]
     Indication: MULTIPLE SCLEROSIS
     Route: 030
     Dates: start: 20050708
  3. AVONEX [Suspect]
     Route: 030
     Dates: start: 19980301, end: 20020604

REACTIONS (5)
  - THROMBOSIS [None]
  - FALL [None]
  - INJURY [None]
  - GAIT DISTURBANCE [None]
  - LIMB INJURY [None]
